FAERS Safety Report 11040076 (Version 3)
Quarter: 2017Q2

REPORT INFORMATION
  Report Type: Report from Study
  Country: None (occurrence: BR)
  Receive Date: 20150416
  Receipt Date: 20170617
  Transmission Date: 20170829
  Serious: Yes (Hospitalization, Other)
  Sender: FDA-Public Use
  Company Number: BR-ABBVIE-15K-020-1374363-00

PATIENT
  Age: 49 Year
  Sex: Female
  Weight: 60 kg

DRUGS (5)
  1. HUMIRA [Suspect]
     Active Substance: ADALIMUMAB
     Dosage: WEEK 2
     Route: 058
     Dates: start: 20150105, end: 20150105
  2. HUMIRA [Suspect]
     Active Substance: ADALIMUMAB
     Route: 058
  3. NOVALGINA [Concomitant]
     Active Substance: METAMIZOLE SODIUM
     Indication: HYPOPHAGIA
     Dosage: LIQUID / DURING ALL DAY
     Route: 042
     Dates: start: 20150406
  4. HUMIRA [Suspect]
     Active Substance: ADALIMUMAB
     Indication: CROHN^S DISEASE
     Dosage: WEEK 0
     Route: 058
     Dates: start: 20141222, end: 20141222
  5. HUMIRA [Suspect]
     Active Substance: ADALIMUMAB
     Dosage: MAINTENANCE DOSE
     Route: 058
     Dates: start: 2015, end: 20150316

REACTIONS (10)
  - Intra-abdominal fluid collection [Recovered/Resolved]
  - Gastrointestinal inflammation [Not Recovered/Not Resolved]
  - Postoperative hernia [Recovered/Resolved]
  - Suture rupture [Recovered/Resolved]
  - Sepsis [Not Recovered/Not Resolved]
  - Post procedural infection [Recovered/Resolved]
  - Hypophagia [Unknown]
  - Abdominal pain [Not Recovered/Not Resolved]
  - Iron deficiency anaemia [Not Recovered/Not Resolved]
  - Diarrhoea [Not Recovered/Not Resolved]

NARRATIVE: CASE EVENT DATE: 201504
